FAERS Safety Report 6130495-7 (Version None)
Quarter: 2009Q1

REPORT INFORMATION
  Report Type: 
  Country: None (occurrence: None)
  Receive Date: 20090323
  Receipt Date: 20090310
  Transmission Date: 20090719
  Serious: Yes (Other)
  Sender: FDA-Public Use
  Company Number: 2009S1000082

PATIENT
  Age: 26 Year
  Sex: Male

DRUGS (8)
  1. SORIATANE [Suspect]
     Indication: PSORIASIS
     Dosage: 10 MG; QD; PO
     Route: 048
     Dates: start: 20060101, end: 20071201
  2. ALCOHOL [Suspect]
     Dosage: X1
  3. BIRTH CONTROL PILLS [Concomitant]
  4. UNSPECIFIED ANTIBIOTICS [Concomitant]
  5. UNSPECIFIED NASAL SPRAY [Concomitant]
  6. UNSPECIFIED EYE DROPS [Concomitant]
  7. UNSPECIFIED PAIN MEDICATION [Concomitant]
  8. UNSPECIFIED MUSCLE RELAXER [Concomitant]

REACTIONS (2)
  - DRUG EXPOSURE BEFORE PREGNANCY [None]
  - TREATMENT NONCOMPLIANCE [None]
